FAERS Safety Report 12195611 (Version 2)
Quarter: 2016Q2

REPORT INFORMATION
  Report Type: Spontaneous
  Country: FR (occurrence: FR)
  Receive Date: 20160321
  Receipt Date: 20160412
  Transmission Date: 20160815
  Serious: Yes (Other)
  Sender: FDA-Public Use
  Company Number: FR-JNJFOC-20160317534

PATIENT
  Age: 76 Year
  Sex: Female
  Weight: 74 kg

DRUGS (11)
  1. TRIATEC [Concomitant]
     Active Substance: RAMIPRIL
     Route: 065
  2. CALCIUM CARBONATE. [Concomitant]
     Active Substance: CALCIUM CARBONATE
     Route: 065
  3. EZETROL [Concomitant]
     Active Substance: EZETIMIBE
     Route: 065
  4. TAHOR [Concomitant]
     Active Substance: ATORVASTATIN CALCIUM
     Route: 065
  5. CORDARONE [Concomitant]
     Active Substance: AMIODARONE HYDROCHLORIDE
     Route: 065
     Dates: start: 20151223
  6. XARELTO [Suspect]
     Active Substance: RIVAROXABAN
     Indication: CEREBROVASCULAR ACCIDENT PROPHYLAXIS
     Route: 048
     Dates: start: 20151223, end: 20160317
  7. XARELTO [Suspect]
     Active Substance: RIVAROXABAN
     Indication: ATRIAL FIBRILLATION
     Route: 048
     Dates: start: 20151223, end: 20160317
  8. DENOSUMAB [Concomitant]
     Active Substance: DENOSUMAB
     Route: 065
  9. XARELTO [Suspect]
     Active Substance: RIVAROXABAN
     Indication: THROMBOSIS PROPHYLAXIS
     Route: 048
     Dates: start: 20151223, end: 20160317
  10. PROZAC [Concomitant]
     Active Substance: FLUOXETINE HYDROCHLORIDE
     Route: 065
  11. MOPRAL [Concomitant]
     Active Substance: OMEPRAZOLE SODIUM
     Route: 065

REACTIONS (2)
  - Renal failure [Unknown]
  - Erythema multiforme [Recovering/Resolving]

NARRATIVE: CASE EVENT DATE: 20160313
